FAERS Safety Report 5996460-5 (Version None)
Quarter: 2008Q4

REPORT INFORMATION
  Report Type: 
  Country: None (occurrence: None)
  Receive Date: 20081212
  Receipt Date: 20081103
  Transmission Date: 20090506
  Serious: No
  Sender: FDA-Public Use
  Company Number: US-ABBOTT-08P-163-0481721-00

PATIENT
  Sex: Male

DRUGS (2)
  1. HUMIRA [Suspect]
     Indication: CROHN'S DISEASE
     Route: 058
     Dates: start: 20080416, end: 20080924
  2. HUMIRA [Suspect]
     Route: 058
     Dates: start: 20081010

REACTIONS (2)
  - MUSCULOSKELETAL DISCOMFORT [None]
  - MYALGIA [None]
